FAERS Safety Report 20617449 (Version 1)
Quarter: 2022Q1

REPORT INFORMATION
  Report Type: Spontaneous
  Country: US (occurrence: US)
  Receive Date: 20220321
  Receipt Date: 20220321
  Transmission Date: 20220423
  Serious: No
  Sender: FDA-Public Use
  Company Number: US-BIOGEN-2018BI00589157

PATIENT
  Sex: Female

DRUGS (4)
  1. AVONEX PEN [Suspect]
     Active Substance: INTERFERON BETA-1A
     Indication: Multiple sclerosis
     Dosage: 1/4 DOSE
     Route: 050
     Dates: start: 20180510
  2. AVONEX PEN [Suspect]
     Active Substance: INTERFERON BETA-1A
     Dosage: 1/2 DOSE
     Route: 050
  3. AVONEX PEN [Suspect]
     Active Substance: INTERFERON BETA-1A
     Dosage: 3/4 DOSE
     Route: 050
  4. AVONEX PEN [Suspect]
     Active Substance: INTERFERON BETA-1A
     Dosage: FULL DOSE
     Route: 050
     Dates: end: 20200826

REACTIONS (4)
  - Accidental overdose [Unknown]
  - Multiple sclerosis [Not Recovered/Not Resolved]
  - Influenza like illness [Not Recovered/Not Resolved]
  - Dizziness [Not Recovered/Not Resolved]
